FAERS Safety Report 16938154 (Version 1)
Quarter: 2019Q4

REPORT INFORMATION
  Report Type: Spontaneous
  Country: US (occurrence: US)
  Receive Date: 20191018
  Receipt Date: 20191018
  Transmission Date: 20200122
  Serious: Yes (Other)
  Sender: FDA-Public Use
  Company Number: US-ELI_LILLY_AND_COMPANY-US201910004082

PATIENT
  Sex: Female

DRUGS (2)
  1. CYMBALTA [Suspect]
     Active Substance: DULOXETINE HYDROCHLORIDE
     Indication: DEPRESSION
     Dosage: UNK, UNKNOWN
     Route: 065
     Dates: start: 2013
  2. PROZAC [Suspect]
     Active Substance: FLUOXETINE HYDROCHLORIDE
     Indication: DEPRESSION
     Dosage: UNK UNK, UNKNOWN
     Route: 065
     Dates: start: 2001, end: 2013

REACTIONS (6)
  - Vertigo [Not Recovered/Not Resolved]
  - Agitation [Recovered/Resolved]
  - Vertigo [Unknown]
  - Nausea [Not Recovered/Not Resolved]
  - Loss of consciousness [Unknown]
  - Brain injury [Unknown]

NARRATIVE: CASE EVENT DATE: 20091103
